FAERS Safety Report 5702183-X (Version None)
Quarter: 2008Q2

REPORT INFORMATION
  Report Type: 
  Country: None (occurrence: None)
  Receive Date: 20080411
  Receipt Date: 20071119
  Transmission Date: 20081010
  Serious: No
  Sender: FDA-Public Use
  Company Number: US-ABBOTT-07P-163-0425307-00

PATIENT
  Sex: Female
  Weight: 65.83 kg

DRUGS (10)
  1. DEPAKOTE [Suspect]
     Indication: CONVULSION
     Route: 048
     Dates: start: 20070915, end: 20071003
  2. DEPAKOTE [Suspect]
     Route: 048
     Dates: start: 20071003
  3. DEPAKOTE [Suspect]
     Dosage: 500 MG AM, 750 MG PM DAILY
     Route: 048
     Dates: start: 20071003
  4. FELBAMATE [Suspect]
     Indication: CONVULSION
     Route: 048
     Dates: start: 20070915
  5. FELBAMATE [Suspect]
     Route: 048
     Dates: start: 20070909, end: 20070915
  6. CLONAZEPAM [Concomitant]
     Indication: CONVULSION
     Route: 048
     Dates: start: 20060101
  7. PHENOBARBITAL TAB [Concomitant]
     Indication: CONVULSION
     Dosage: 30 MG AM AND 45 MG PM
     Route: 048
     Dates: start: 19960101
  8. METOPROLOL TARTRATE [Concomitant]
     Indication: HEART RATE IRREGULAR
     Route: 048
     Dates: start: 20070902, end: 20070902
  9. METOPROLOL TARTRATE [Concomitant]
     Route: 048
     Dates: start: 20070902
  10. METHYLPREDNISOLONE SODIUM SUCCINATE [Concomitant]
     Indication: ILL-DEFINED DISORDER
     Route: 042
     Dates: start: 20070905, end: 20070921

REACTIONS (4)
  - PHARYNGOLARYNGEAL PAIN [None]
  - PYREXIA [None]
  - RASH [None]
  - SOMNOLENCE [None]
